FAERS Safety Report 7285504-9 (Version None)
Quarter: 2011Q1

REPORT INFORMATION
  Report Type: 
  Country: None (occurrence: None)
  Receive Date: 20110210
  Receipt Date: 20110202
  Transmission Date: 20110831
  Serious: Yes (Other)
  Sender: FDA-Public Use
  Company Number: JP-PFIZER INC-2011023544

PATIENT
  Age: 50 Year
  Sex: Female
  Weight: 52 kg

DRUGS (5)
  1. METHYLPREDNISOLONE SODIUM SUCCINATE [Suspect]
     Indication: AUTOIMMUNE HEPATITIS
     Dosage: 250 MG/DAY
     Dates: start: 20080324
  2. PREDNISOLONE [Suspect]
     Indication: AUTOIMMUNE HEPATITIS
     Dosage: UNK
     Dates: start: 20080225
  3. PREDNISOLONE [Suspect]
     Dosage: UNK
     Dates: start: 20080429, end: 20080503
  4. PREDNISOLONE [Suspect]
     Dosage: UNK
     Dates: start: 20080504, end: 20080508
  5. PREDNISOLONE [Suspect]
     Dosage: UNK
     Dates: start: 20080509, end: 20080520

REACTIONS (2)
  - DRUG INEFFECTIVE FOR UNAPPROVED INDICATION [None]
  - PNEUMOCYSTIS JIROVECI PNEUMONIA [None]
